FAERS Safety Report 4504972-6 (Version None)
Quarter: 2004Q4

REPORT INFORMATION
  Report Type: 
  Country: None (occurrence: None)
  Receive Date: 20041015
  Receipt Date: 20031218
  Transmission Date: 20050328
  Serious: Yes (Other)
  Sender: FDA-Public Use
  Company Number: 2003125902

PATIENT
  Age: 20 Year
  Sex: Male
  Weight: 86.1834 kg

DRUGS (2)
  1. NEURONTIN [Suspect]
     Indication: JOINT INJURY
     Dosage: 600 MG (TID), ORAL
     Route: 048
     Dates: start: 20030301, end: 20031201
  2. VICODIN [Concomitant]

REACTIONS (4)
  - BACK PAIN [None]
  - IMPAIRED DRIVING ABILITY [None]
  - VISUAL DISTURBANCE [None]
  - WEIGHT INCREASED [None]
